FAERS Safety Report 8431787-9 (Version None)
Quarter: 2012Q2

REPORT INFORMATION
  Report Type: 
  Country: None (occurrence: None)
  Receive Date: 20120613
  Receipt Date: 20120607
  Transmission Date: 20120825
  Serious: Yes (Other)
  Sender: FDA-Public Use
  Company Number: US-PFIZER INC-2012137823

PATIENT
  Sex: Female
  Weight: 98.413 kg

DRUGS (5)
  1. NEURONTIN [Suspect]
     Indication: NERVE INJURY
     Dosage: 300 MG, 3X/DAY
     Route: 048
  2. SITAGLIPTIN AND METFORMIN HYDROCHLORIDE [Concomitant]
     Indication: DIABETES MELLITUS
     Dosage: 50/1000 MG, UNK
  3. NEURONTIN [Suspect]
     Indication: NEUROPATHY PERIPHERAL
     Dosage: 300 MG, 2X/DAY
     Route: 048
     Dates: start: 20110301
  4. DIOVAN [Concomitant]
     Indication: HYPERTENSION
     Dosage: UNK
  5. NEURONTIN [Suspect]
     Dosage: 300 MG, 2X/DAY
     Route: 048
     Dates: end: 20120501

REACTIONS (8)
  - HYPERTENSION [None]
  - PARAESTHESIA [None]
  - NAUSEA [None]
  - HYPOAESTHESIA [None]
  - PAIN IN EXTREMITY [None]
  - BLOOD GLUCOSE INCREASED [None]
  - MUSCULOSKELETAL DISORDER [None]
  - PAIN [None]
